FAERS Safety Report 4350455-6 (Version None)
Quarter: 2004Q2

REPORT INFORMATION
  Report Type: 
  Country: None (occurrence: None)
  Receive Date: 20040427
  Receipt Date: 20040421
  Transmission Date: 20050107
  Serious: Yes (Hospitalization)
  Sender: FDA-Public Use
  Company Number: 2004201708US

PATIENT
  Age: 77 Year
  Sex: Female

DRUGS (4)
  1. CELEBREX [Suspect]
     Indication: PAIN IN EXTREMITY
     Dates: start: 20021201, end: 20021201
  2. LISINOPRIL [Concomitant]
  3. CARTIA [Concomitant]
  4. SYNTHROID [Concomitant]

REACTIONS (3)
  - ATRIAL FIBRILLATION [None]
  - FEELING ABNORMAL [None]
  - RASH [None]
